FAERS Safety Report 8768007 (Version 1)
Quarter: 2012Q4

REPORT INFORMATION
  Report Type: 
  Country: ES (occurrence: ES)
  Receive Date: 20120830
  Receipt Date: 20120830
  Transmission Date: 20130627
  Serious: Yes (Hospitalization, Other)
  Sender: FDA-Public Use
  Company Number: ES-ELI_LILLY_AND_COMPANY-ES201208007792

PATIENT
  Sex: Male

DRUGS (3)
  1. FORSTEO [Suspect]
     Dosage: UNK, unknown
     Route: 058
     Dates: start: 20110801, end: 201204
  2. FORSTEO [Suspect]
     Dosage: UNK, unknown
     Route: 058
     Dates: start: 201205, end: 201205
  3. SINTROM [Concomitant]
     Dosage: UNK, unknown
     Route: 065

REACTIONS (1)
  - Thrombosis [Unknown]
